FAERS Safety Report 7212988-4 (Version None)
Quarter: 2011Q1

REPORT INFORMATION
  Report Type: 
  Country: None (occurrence: None)
  Receive Date: 20110106
  Receipt Date: 20110103
  Transmission Date: 20110831
  Serious: Yes (Disabling)
  Sender: FDA-Public Use
  Company Number: A0902521A

PATIENT
  Age: 15 Year
  Sex: Female

DRUGS (4)
  1. ZOLOFT [Concomitant]
     Dates: end: 20110103
  2. KLONOPIN [Concomitant]
     Dates: end: 20110103
  3. KEPPRA [Concomitant]
  4. LAMOTRIGINE [Suspect]
     Indication: EPILEPSY
     Dosage: 25MG PER DAY
     Route: 048
     Dates: start: 20101210

REACTIONS (6)
  - AMNESIA [None]
  - URTICARIA [None]
  - OCULAR HYPERAEMIA [None]
  - MIGRAINE [None]
  - PRURITUS [None]
  - PETIT MAL EPILEPSY [None]
